FAERS Safety Report 6078238-X (Version None)
Quarter: 2009Q1

REPORT INFORMATION
  Report Type: 
  Country: None (occurrence: None)
  Receive Date: 20090213
  Receipt Date: 20090203
  Transmission Date: 20090719
  Serious: Yes (Death)
  Sender: FDA-Public Use
  Company Number: US-ELI_LILLY_AND_COMPANY-US200902001149

PATIENT
  Age: 49 Year
  Sex: Female

DRUGS (15)
  1. ZYPREXA [Suspect]
     Dosage: 7.5 MG, UNK
  2. SINGULAIR [Concomitant]
  3. REMERON [Concomitant]
  4. FENTANYL [Concomitant]
  5. HYDROMORPHONE HCL [Concomitant]
  6. NEFAZODONE HCL [Concomitant]
  7. AMITRIPTYLINE HCL [Concomitant]
  8. PROCHLORPERAZINE [Concomitant]
  9. LORAZEPAM [Concomitant]
  10. GEODON /01487002/ [Concomitant]
  11. FLURAZEPAM [Concomitant]
  12. WELLBUTRIN [Concomitant]
  13. PREVACID [Concomitant]
  14. FAMOTIDINE [Concomitant]
  15. METOCLOPRAMIDE [Concomitant]

REACTIONS (1)
  - DRUG TOXICITY [None]
